FAERS Safety Report 16421281 (Version 1)
Quarter: 2019Q3

REPORT INFORMATION
  Report Type: Spontaneous
  Country: US (occurrence: US)
  Receive Date: 20190611
  Receipt Date: 20190611
  Transmission Date: 20191004
  Serious: No
  Sender: FDA-Public Use
  Company Number: None

PATIENT
  Age: 43 Year
  Sex: Female
  Weight: 53.55 kg

DRUGS (13)
  1. LOTEMAX [Concomitant]
     Active Substance: LOTEPREDNOL ETABONATE
  2. TRAVATAN Z [Concomitant]
     Active Substance: TRAVOPROST
  3. GENERIC OF ADDERALL XR [Concomitant]
  4. SUCRALFATE. [Concomitant]
     Active Substance: SUCRALFATE
  5. COMBIGAN [Concomitant]
     Active Substance: BRIMONIDINE TARTRATE\TIMOLOL MALEATE
  6. REFRESH PLUS ARTIFICIAL TEARS [Concomitant]
  7. BUPROPRION XL 300MG [Suspect]
     Active Substance: BUPROPION
     Indication: DEPRESSION
     Dosage: ?          QUANTITY:1 TABLET(S);?
     Route: 048
  8. CYCLOSPORINE. [Concomitant]
     Active Substance: CYCLOSPORINE
  9. FLONASE [Concomitant]
     Active Substance: FLUTICASONE PROPIONATE
  10. ONE A DAY PRENATAL [Concomitant]
  11. PRED FORTE [Concomitant]
     Active Substance: PREDNISOLONE ACETATE
  12. WELLBUTRIN XL [Concomitant]
     Active Substance: BUPROPION HYDROCHLORIDE
  13. MURO [Concomitant]

REACTIONS (5)
  - Weight increased [None]
  - Suicidal ideation [None]
  - Product substitution issue [None]
  - Drug ineffective [None]
  - Crying [None]

NARRATIVE: CASE EVENT DATE: 20190524
